FAERS Safety Report 9375917 (Version 3)
Quarter: 2013Q4

REPORT INFORMATION
  Report Type: Report from Study
  Country: GB (occurrence: GB)
  Receive Date: 20130628
  Receipt Date: 20131203
  Transmission Date: 20140711
  Serious: Yes (Other)
  Sender: FDA-Public Use
  Company Number: GB-MERCK-1306GBR006847

PATIENT
  Age: 71 Year
  Sex: Female

DRUGS (10)
  1. COSOPT 20 MG/ML + 5 MG/ML, EYE DROPS, SOLUTION [Suspect]
     Indication: GLAUCOMA
     Dosage: 1 DF, BID
     Route: 047
  2. COSOPT 20 MG/ML + 5 MG/ML, EYE DROPS, SOLUTION [Suspect]
     Dosage: UNK
     Route: 047
     Dates: start: 2010
  3. TRUSOPT 20 MG/ML EYE DROPS, SOLUTION [Suspect]
     Indication: GLAUCOMA
     Route: 047
  4. XALATAN [Suspect]
     Indication: GLAUCOMA
     Dosage: 1 DF, QD
     Route: 031
  5. XALATAN [Suspect]
     Dosage: UNK
     Route: 031
     Dates: start: 2010
  6. TIMOLOL MALEATE [Suspect]
     Indication: GLAUCOMA
     Route: 047
  7. AZOPT [Suspect]
     Indication: GLAUCOMA
     Route: 047
  8. ALPHAGAN [Suspect]
     Indication: GLAUCOMA
     Route: 047
  9. AZARGA [Suspect]
     Indication: GLAUCOMA
     Route: 047
  10. AMITRIPTYLINE HYDROCHLORIDE [Concomitant]
     Dosage: 10 MG, QD

REACTIONS (8)
  - Eye operation [Recovered/Resolved]
  - Glaucoma [Unknown]
  - Intraocular pressure test abnormal [Unknown]
  - Hypersensitivity [Unknown]
  - Drug ineffective [Unknown]
  - Trabeculectomy [Unknown]
  - Laser therapy [Unknown]
  - Deep vein thrombosis [Unknown]
